FAERS Safety Report 25459703 (Version 1)
Quarter: 2025Q2

REPORT INFORMATION
  Report Type: Spontaneous
  Country: CA (occurrence: CA)
  Receive Date: 20250620
  Receipt Date: 20250620
  Transmission Date: 20250717
  Serious: Yes (Other)
  Sender: CSL BEHRING
  Company Number: CA-BEH-2025209228

PATIENT
  Sex: Male

DRUGS (1)
  1. ALBUMIN HUMAN [Suspect]
     Active Substance: ALBUMIN HUMAN
     Indication: Product used for unknown indication
     Route: 042

REACTIONS (9)
  - Bacterial infection [Unknown]
  - Administration site infection [Unknown]
  - Blood pressure increased [Unknown]
  - Chills [Unknown]
  - Febrile nonhaemolytic transfusion reaction [Unknown]
  - Heart rate increased [Unknown]
  - Livedo reticularis [Unknown]
  - Staphylococcus test positive [Unknown]
  - Vascular device infection [Unknown]
